FAERS Safety Report 7764709-4 (Version None)
Quarter: 2011Q3

REPORT INFORMATION
  Report Type: 
  Country: None (occurrence: None)
  Receive Date: 20110921
  Receipt Date: 20110920
  Transmission Date: 20111222
  Serious: Yes (Life-Threatening, Hospitalization)
  Sender: FDA-Public Use
  Company Number: AU-B.I. PHARMACEUTICALS,INC./RIDGEFIELD-2011-AU-01278AU

PATIENT
  Sex: Female
  Weight: 70 kg

DRUGS (5)
  1. AVAPRO HCT [Concomitant]
  2. RABEPRAZOLE SODIUM [Concomitant]
  3. AZATHIOPRINE [Concomitant]
  4. PAROXETINE HCL [Concomitant]
  5. PRADAXA [Suspect]
     Indication: ATRIAL FIBRILLATION
     Dosage: 220 MG
     Dates: start: 20110716, end: 20110730

REACTIONS (1)
  - ISCHAEMIC STROKE [None]
